FAERS Safety Report 4782648-8 (Version None)
Quarter: 2005Q3

REPORT INFORMATION
  Report Type: 
  Country: None (occurrence: None)
  Receive Date: 20050929
  Receipt Date: 20050531
  Transmission Date: 20060218
  Serious: No
  Sender: FDA-Public Use
  Company Number: 406546

PATIENT
  Age: 63 Year
  Sex: Female

DRUGS (8)
  1. COREG [Suspect]
     Indication: HYPERTENSION
     Dosage: 6.25MG PER DAY
     Route: 048
     Dates: start: 20050317
  2. ZOCOR [Concomitant]
  3. LEVOXYL [Concomitant]
  4. DIOVAN [Concomitant]
  5. METOPROLOL [Concomitant]
  6. PREMARIN [Concomitant]
  7. ASPIRIN [Concomitant]
  8. NASONEX [Concomitant]

REACTIONS (2)
  - PRURITUS GENERALISED [None]
  - SKIN ULCER [None]
